FAERS Safety Report 23091056 (Version 1)
Quarter: 2023Q4

REPORT INFORMATION
  Report Type: Spontaneous
  Country: FR (occurrence: FR)
  Receive Date: 20231020
  Receipt Date: 20231020
  Transmission Date: 20240110
  Serious: Yes (Other)
  Sender: FDA-Public Use
  Company Number: None

PATIENT
  Age: 24 Year
  Sex: Female
  Weight: 58 kg

DRUGS (11)
  1. LANSOPRAZOLE [Suspect]
     Active Substance: LANSOPRAZOLE
     Indication: Product used for unknown indication
     Dosage: 1 DOSAGE FORM, QD
     Route: 048
     Dates: start: 2018
  2. CHOLECALCIFEROL [Suspect]
     Active Substance: CHOLECALCIFEROL
     Indication: Vitamin supplementation
     Dosage: UNK UNK, MONTHLY
     Route: 048
     Dates: start: 201905, end: 202307
  3. TOPIRAMATE [Suspect]
     Active Substance: TOPIRAMATE
     Indication: Severe myoclonic epilepsy of infancy
     Dosage: 150 MILLIGRAM, QD
     Route: 048
     Dates: start: 2021
  4. VALPROATE SODIUM [Suspect]
     Active Substance: VALPROATE SODIUM
     Indication: Severe myoclonic epilepsy of infancy
     Dosage: 1250 MILLIGRAM, QD
     Route: 048
     Dates: start: 2005
  5. TOPIRAMATE [Concomitant]
     Active Substance: TOPIRAMATE
     Dosage: UNK
  6. LEVOTHYROXINE [Concomitant]
     Active Substance: LEVOTHYROXINE
     Dosage: UNK
  7. POLYETHYLENE GLYCOL 4000 [Concomitant]
     Active Substance: POLYETHYLENE GLYCOL 4000
     Dosage: UNK
  8. ETHINYL ESTRADIOL\LEVONORGESTREL [Concomitant]
     Active Substance: ETHINYL ESTRADIOL\LEVONORGESTREL
     Dosage: UNK
  9. BILASTINE [Concomitant]
     Active Substance: BILASTINE
     Dosage: UNK
  10. DIACOMIT [Concomitant]
     Active Substance: STIRIPENTOL
     Dosage: UNK
  11. CLOBAZAM [Concomitant]
     Active Substance: CLOBAZAM
     Dosage: UNK

REACTIONS (2)
  - Renal failure [Not Recovered/Not Resolved]
  - Hypervitaminosis D [Recovering/Resolving]

NARRATIVE: CASE EVENT DATE: 20230501
